FAERS Safety Report 17494061 (Version 1)
Quarter: 2020Q1

REPORT INFORMATION
  Report Type: Report from Study
  Country: None (occurrence: US)
  Receive Date: 20200304
  Receipt Date: 20200304
  Transmission Date: 20200409
  Serious: Yes (Other)
  Sender: FDA-Public Use
  Company Number: US-ABBVIE-20K-163-3300742-00

PATIENT
  Age: 67 Year
  Sex: Female

DRUGS (1)
  1. VENCLEXTA [Suspect]
     Active Substance: VENETOCLAX
     Indication: CHRONIC LYMPHOCYTIC LEUKAEMIA
     Route: 048
     Dates: start: 20200219

REACTIONS (6)
  - Dry skin [Unknown]
  - Hernia [Unknown]
  - Discomfort [Unknown]
  - Blood uric acid increased [Unknown]
  - Fluid retention [Unknown]
  - Weight decreased [Unknown]

NARRATIVE: CASE EVENT DATE: 202002
